FAERS Safety Report 8798106 (Version 1)
Quarter: 2012Q4

REPORT INFORMATION
  Report Type: 
  Country: FR (occurrence: FR)
  Receive Date: 20120920
  Receipt Date: 20120920
  Transmission Date: 20130627
  Serious: Yes (Hospitalization)
  Sender: FDA-Public Use
  Company Number: FR-MERCK-1209FRA005878

PATIENT
  Age: 49 Year
  Sex: Female

DRUGS (6)
  1. VICTRELIS [Suspect]
     Indication: HEPATITIS C
     Dosage: 800 mg, tid
     Route: 048
     Dates: start: 20120309
  2. VIRAFERONPEG [Suspect]
     Indication: HEPATITIS C
     Dosage: 100 Microgram, qw
     Route: 058
     Dates: start: 20120210
  3. VIRAFERONPEG [Suspect]
     Dosage: 80 Microgram, qw
     Dates: start: 20120507
  4. REBETOL [Suspect]
     Indication: HEPATITIS C
     Dosage: 1000 mg, qd
     Route: 048
     Dates: start: 20120210
  5. METHADONE HYDROCHLORIDE [Concomitant]
     Indication: DRUG ABUSE
     Dosage: 60 mg, qd
  6. METHADONE HYDROCHLORIDE [Concomitant]
     Dosage: 70 mg, qd

REACTIONS (3)
  - Anaemia [Recovering/Resolving]
  - Thrombocytopenia [Recovering/Resolving]
  - Insomnia [Recovering/Resolving]
